FAERS Safety Report 5449888-6 (Version None)
Quarter: 2007Q3

REPORT INFORMATION
  Report Type: 
  Country: None (occurrence: None)
  Receive Date: 20070910
  Receipt Date: 20070910
  Transmission Date: 20080115
  Serious: Yes (Hospitalization)
  Sender: FDA-Public Use
  Company Number: None

PATIENT
  Sex: Female
  Weight: 100 kg

DRUGS (10)
  1. CYCLOPHOSPHAMIDE [Suspect]
     Dosage: 2640 MG
     Dates: start: 20070703, end: 20070703
  2. DAUNORUBICIN HCL [Suspect]
     Dosage: 528 MG
     Dates: end: 20070705
  3. ACYCLOVIR [Concomitant]
  4. COMPAZINE [Concomitant]
  5. DIGOXIN [Concomitant]
  6. DILTIAZEM [Concomitant]
  7. POTTASIUM CHLORIDE [Concomitant]
  8. PROTONIX [Concomitant]
  9. SYNTHROID [Concomitant]
  10. ZOLOFT [Concomitant]

REACTIONS (9)
  - BODY TEMPERATURE INCREASED [None]
  - CANDIDIASIS [None]
  - CULTURE POSITIVE [None]
  - DIARRHOEA [None]
  - HAEMATOCHEZIA [None]
  - HAEMORRHOIDS [None]
  - NEUTROPENIA [None]
  - ODYNOPHAGIA [None]
  - STOMATITIS [None]
